FAERS Safety Report 20130539 (Version 3)
Quarter: 2022Q1

REPORT INFORMATION
  Report Type: Spontaneous
  Country: US (occurrence: US)
  Receive Date: 20211130
  Receipt Date: 20220107
  Transmission Date: 20220423
  Serious: Yes (Other)
  Sender: FDA-Public Use
  Company Number: US-PFIZER INC-202101565568

PATIENT
  Age: 77 Year
  Sex: Female

DRUGS (3)
  1. DILTIAZEM HYDROCHLORIDE [Suspect]
     Active Substance: DILTIAZEM HYDROCHLORIDE
     Indication: Heart rate increased
     Dosage: UNK
  2. DILTIAZEM HYDROCHLORIDE [Suspect]
     Active Substance: DILTIAZEM HYDROCHLORIDE
     Indication: Blood pressure increased
     Dosage: 100 MG (TITRATION BASED ON HEART RATE)
     Route: 042
     Dates: start: 20211010, end: 20211015
  3. DILTIAZEM HYDROCHLORIDE [Suspect]
     Active Substance: DILTIAZEM HYDROCHLORIDE
     Indication: Atrial fibrillation

REACTIONS (3)
  - Product dose omission issue [Unknown]
  - Device malfunction [Unknown]
  - Heart rate increased [Unknown]

NARRATIVE: CASE EVENT DATE: 20211012
